FAERS Safety Report 16888183 (Version 2)
Quarter: 2020Q1

REPORT INFORMATION
  Report Type: Report from Study
  Country: None (occurrence: NL)
  Receive Date: 20191006
  Receipt Date: 20200127
  Transmission Date: 20200409
  Serious: Yes (Hospitalization, Other)
  Sender: FDA-Public Use
  Company Number: NL-ABBVIE-19S-114-2654585-00

PATIENT
  Sex: Male
  Weight: 67 kg

DRUGS (8)
  1. DUODOPA [Suspect]
     Active Substance: CARBIDOPA\LEVODOPA
     Dosage: MD: 9.0, CD: 2.7, ED: 3.0?16 HOUR ADMINISTRATION
     Route: 050
     Dates: start: 2019, end: 2019
  2. DUODOPA [Suspect]
     Active Substance: CARBIDOPA\LEVODOPA
     Dosage: MD: 8.0, CD: 2.7, ED: 3.0?16 HOUR ADMINISTRATION
     Route: 050
     Dates: start: 2019
  3. SINEMET 125CR [Concomitant]
     Indication: PARKINSON^S DISEASE
     Dosage: 100 MG/25 MG, ONE AFTER DICONNECTING THE PUMP
  4. LEVODOPA/CARBIDOPA 125 RETARD [Concomitant]
     Indication: PARKINSON^S DISEASE
     Dosage: 100 MG/25 MG, ONE WHEN GOING TO BED
  5. SYMMETREL [Concomitant]
     Active Substance: AMANTADINE HYDROCHLORIDE
     Indication: PARKINSON^S DISEASE
  6. DUODOPA [Suspect]
     Active Substance: CARBIDOPA\LEVODOPA
     Indication: PARKINSON^S DISEASE
     Dosage: MD: 9.0, CD: 2.9, ED: 3.0,16 HOUR TREATMENT
     Route: 050
     Dates: start: 20190121, end: 2019
  7. DUODOPA [Suspect]
     Active Substance: CARBIDOPA\LEVODOPA
     Dosage: INCREASE THE CONTINUOUS DOSE BY 0.1 ML/HR AND TO INCREASE THE MORNING DOSE BY 1.0 ML.
     Route: 050
     Dates: start: 2019, end: 2019
  8. NUTRIDRINK [Concomitant]
     Active Substance: CARBOHYDRATES\FATTY ACIDS\MINERALS\PROTEIN\VITAMINS
     Indication: PRODUCT USED FOR UNKNOWN INDICATION

REACTIONS (31)
  - Nightmare [Not Recovered/Not Resolved]
  - Infection [Not Recovered/Not Resolved]
  - Stoma site discharge [Not Recovered/Not Resolved]
  - Muscle fatigue [Not Recovered/Not Resolved]
  - Hallucination, visual [Not Recovered/Not Resolved]
  - Bradykinesia [Not Recovered/Not Resolved]
  - Animal bite [Recovering/Resolving]
  - Pneumonia [Not Recovered/Not Resolved]
  - General physical health deterioration [Not Recovered/Not Resolved]
  - Freezing phenomenon [Not Recovered/Not Resolved]
  - Speech disorder [Not Recovered/Not Resolved]
  - Hallucination [Recovered/Resolved]
  - On and off phenomenon [Not Recovered/Not Resolved]
  - Muscle rigidity [Not Recovered/Not Resolved]
  - Hallucination [Recovering/Resolving]
  - Mood swings [Recovered/Resolved]
  - Decreased appetite [Recovered/Resolved]
  - Stoma site inflammation [Unknown]
  - Hallucination, visual [Recovered/Resolved]
  - Hypoaesthesia [Not Recovered/Not Resolved]
  - Limb injury [Recovering/Resolving]
  - Weight decreased [Recovered/Resolved]
  - Unevaluable event [Not Recovered/Not Resolved]
  - Abnormal dreams [Not Recovered/Not Resolved]
  - Stoma site erythema [Not Recovered/Not Resolved]
  - Muscle spasms [Not Recovered/Not Resolved]
  - Dyskinesia [Recovered/Resolved]
  - Memory impairment [Not Recovered/Not Resolved]
  - Pain [Unknown]
  - Sluggishness [Not Recovered/Not Resolved]
  - Polyneuropathy [Not Recovered/Not Resolved]

NARRATIVE: CASE EVENT DATE: 2019
